FAERS Safety Report 10630319 (Version 1)
Quarter: 2014Q4

REPORT INFORMATION
  Report Type: Spontaneous
  Country: US (occurrence: US)
  Receive Date: 20141205
  Receipt Date: 20141205
  Transmission Date: 20150529
  Serious: No
  Sender: FDA-Public Use
  Company Number: US-BRISTOL-MYERS SQUIBB COMPANY-21265541

PATIENT
  Age: 42 Year
  Sex: Female

DRUGS (3)
  1. LAMICTAL [Suspect]
     Active Substance: LAMOTRIGINE
  2. ABILIFY [Suspect]
     Active Substance: ARIPIPRAZOLE
     Indication: BIPOLAR DISORDER
     Dosage: DOSE INCREASED FROM 2MG TO 5 MG
  3. LEXAPRO [Suspect]
     Active Substance: ESCITALOPRAM OXALATE

REACTIONS (1)
  - Anxiety [Unknown]
